FAERS Safety Report 26104707 (Version 1)
Quarter: 2025Q4

REPORT INFORMATION
  Report Type: Spontaneous
  Country: IN (occurrence: IN)
  Receive Date: 20251130
  Receipt Date: 20251130
  Transmission Date: 20260118
  Serious: Yes (Other)
  Sender: ALKEM
  Company Number: None

PATIENT
  Age: 35 Year
  Sex: Male

DRUGS (4)
  1. MYCOPHENOLATE MOFETIL [Suspect]
     Active Substance: MYCOPHENOLATE MOFETIL
     Indication: Immunosuppressant drug therapy
     Dosage: UNK (MAINTENANCE THERAPY)
     Route: 065
     Dates: start: 2011
  2. BASILIXIMAB [Suspect]
     Active Substance: BASILIXIMAB
     Indication: Immunosuppressant drug therapy
     Dosage: UNK (INDUCTION THERAPY)
     Route: 065
  3. CYCLOSPORINE [Suspect]
     Active Substance: CYCLOSPORINE
     Indication: Immunosuppressant drug therapy
     Dosage: UNK (MAINTENANCE THERAPY)
     Route: 065
     Dates: start: 2011
  4. PREDNISOLONE [Suspect]
     Active Substance: PREDNISOLONE
     Indication: Immunosuppressant drug therapy
     Dosage: UNK (MAINTENANCE THERAPY)
     Route: 065
     Dates: start: 2011

REACTIONS (2)
  - Endophthalmitis [Recovered/Resolved]
  - Mycobacterium abscessus infection [Recovered/Resolved]

NARRATIVE: CASE EVENT DATE: 20230101
